FAERS Safety Report 4684342-0 (Version None)
Quarter: 2005Q2

REPORT INFORMATION
  Report Type: 
  Country: None (occurrence: None)
  Receive Date: 20050531
  Receipt Date: 20041108
  Transmission Date: 20051028
  Serious: Yes (Hospitalization)
  Sender: FDA-Public Use
  Company Number: USA041183564

PATIENT
  Age: 45 Year
  Sex: Female

DRUGS (3)
  1. ZYPREXA [Suspect]
     Indication: ANXIETY
     Dosage: 5 MG/2 DAY
     Dates: start: 20030401, end: 20041008
  2. ZYPREXA [Suspect]
     Indication: PANIC REACTION
     Dosage: 5 MG/2 DAY
     Dates: start: 20030401, end: 20041008
  3. VALIUM [Concomitant]

REACTIONS (7)
  - ABDOMINAL DISTENSION [None]
  - DEHYDRATION [None]
  - DRUG WITHDRAWAL SYNDROME [None]
  - INSOMNIA [None]
  - PANIC ATTACK [None]
  - VOMITING [None]
  - WEIGHT DECREASED [None]
